FAERS Safety Report 7756651-X (Version None)
Quarter: 2011Q3

REPORT INFORMATION
  Report Type: 
  Country: None (occurrence: None)
  Receive Date: 20110916
  Receipt Date: 20110914
  Transmission Date: 20111222
  Serious: Yes (Other)
  Sender: FDA-Public Use
  Company Number: PL-PFIZER INC-2011189141

PATIENT
  Sex: Female

DRUGS (6)
  1. ZOLOFT [Suspect]
     Indication: PERSONALITY DISORDER
     Dosage: 125 MG, 1X/DAY
     Route: 048
     Dates: start: 20091201, end: 20110811
  2. TOPAMAX [Suspect]
     Dosage: 100 MG, UNK
     Route: 048
     Dates: start: 20091201
  3. ZOLOFT [Suspect]
     Indication: OBSESSIVE-COMPULSIVE DISORDER
     Dosage: FROM 50 MG TO 200MG
     Route: 048
     Dates: start: 20060301, end: 20091201
  4. ZOLOFT [Suspect]
     Dosage: 100 MG, 1X/DAY
     Dates: start: 20110811, end: 20110911
  5. FLUANXOL [Suspect]
     Dosage: 0.5 MG, UNK
     Dates: start: 20110401, end: 20110818
  6. FLUANXOL [Suspect]
     Dosage: 1 MG, UNK
     Route: 048
     Dates: start: 20070101, end: 20110401

REACTIONS (3)
  - HYPERLIPIDAEMIA [None]
  - HYPERPROLACTINAEMIA [None]
  - GALACTORRHOEA [None]
